FAERS Safety Report 20939630 (Version 1)
Quarter: 2022Q2

REPORT INFORMATION
  Report Type: Spontaneous
  Country: JP (occurrence: JP)
  Receive Date: 20220609
  Receipt Date: 20220609
  Transmission Date: 20220721
  Serious: Yes (Death)
  Sender: FDA-Public Use
  Company Number: JP-JNJFOC-20210921964

PATIENT
  Age: 77 Year
  Sex: Male

DRUGS (6)
  1. UPTRAVI [Suspect]
     Active Substance: SELEXIPAG
     Indication: Pulmonary arterial hypertension
     Route: 048
     Dates: start: 20201202, end: 2021
  2. UPTRAVI [Suspect]
     Active Substance: SELEXIPAG
     Indication: Pulmonary hypertension
     Route: 048
     Dates: start: 2021
  3. UPTRAVI [Suspect]
     Active Substance: SELEXIPAG
     Dosage: UNKNOWN DOSE
     Route: 048
     Dates: start: 20201202
  4. UPTRAVI [Suspect]
     Active Substance: SELEXIPAG
     Dosage: DATE OF DRUG ADMINISTRATION UNKNOWN.
     Route: 048
     Dates: end: 2021
  5. UPTRAVI [Suspect]
     Active Substance: SELEXIPAG
     Route: 048
     Dates: start: 20200324
  6. UPTRAVI [Suspect]
     Active Substance: SELEXIPAG
     Route: 048

REACTIONS (2)
  - Bronchiectasis [Fatal]
  - Diarrhoea [Recovered/Resolved]

NARRATIVE: CASE EVENT DATE: 20210622
